FAERS Safety Report 7017447-X (Version None)
Quarter: 2010Q3

REPORT INFORMATION
  Report Type: 
  Country: None (occurrence: None)
  Receive Date: 20100928
  Receipt Date: 20100920
  Transmission Date: 20110219
  Serious: Yes (Life-Threatening, Hospitalization, Disabling)
  Sender: FDA-Public Use
  Company Number: DE-BAYER-200935675GPV

PATIENT
  Age: 18 Year
  Sex: Female
  Weight: 58 kg

DRUGS (2)
  1. YASMIN [Suspect]
     Indication: CONTRACEPTION
     Route: 048
     Dates: start: 20050601, end: 20060801
  2. ZALDIAR [Concomitant]
     Indication: PAIN
     Dates: start: 20060811, end: 20060815

REACTIONS (7)
  - ABDOMINAL PAIN LOWER [None]
  - CHEST PAIN [None]
  - DEEP VEIN THROMBOSIS [None]
  - PELVIC VENOUS THROMBOSIS [None]
  - PLEURAL EFFUSION [None]
  - POST THROMBOTIC SYNDROME [None]
  - PULMONARY EMBOLISM [None]
